FAERS Safety Report 19994408 (Version 2)
Quarter: 2021Q4

REPORT INFORMATION
  Report Type: Spontaneous
  Country: FR (occurrence: FR)
  Receive Date: 20211026
  Receipt Date: 20211230
  Transmission Date: 20220303
  Serious: Yes (Hospitalization)
  Sender: FDA-Public Use
  Company Number: FR-AFSSAPS-NY20214603

PATIENT
  Age: 47 Year
  Sex: Female
  Weight: 80 kg

DRUGS (17)
  1. PAROXETINE [Suspect]
     Active Substance: PAROXETINE
     Indication: Depression
     Dosage: 60 MILLIGRAM, DAILY
     Route: 048
  2. QUETIAPINE [Suspect]
     Active Substance: QUETIAPINE
     Indication: Bipolar disorder
     Dosage: 700 MILLIGRAM, DAILY
     Route: 048
  3. MORPHINE SULFATE [Suspect]
     Active Substance: MORPHINE SULFATE
     Indication: Analgesic therapy
     Dosage: UNK, ()
     Route: 048
     Dates: start: 20210914
  4. ONDANSETRON [Suspect]
     Active Substance: ONDANSETRON
     Indication: Vomiting
     Dosage: 8 MILLIGRAM, DAILY
     Route: 048
     Dates: end: 20210929
  5. ONDANSETRON [Suspect]
     Active Substance: ONDANSETRON
     Indication: Vomiting
  6. SKENAN [Suspect]
     Active Substance: MORPHINE SULFATE
     Indication: Analgesic therapy
     Dosage: 60 MILLIGRAM, DAILY
     Route: 048
     Dates: start: 20210914
  7. TERCIAN 25 mg film-coated tablet [Concomitant]
     Indication: Agitation
     Dosage: 25 MILLIGRAM, DAILY
     Route: 048
     Dates: start: 20210929
  8. ENOXAPARIN SODIUM [Concomitant]
     Active Substance: ENOXAPARIN SODIUM
     Indication: Anticoagulant therapy
     Dosage: 4000 INTERNATIONAL UNIT, DAILY
     Route: 058
  9. PYRIDOXINE HYDROCHLORIDE\THIAMINE HYDROCHLORIDE [Concomitant]
     Active Substance: PYRIDOXINE HYDROCHLORIDE\THIAMINE HYDROCHLORIDE
     Indication: Vitamin supplementation
     Dosage: 2 DOSAGE FORM, DAILY
     Route: 065
  10. INCRUSE ELLIPTA [Concomitant]
     Active Substance: UMECLIDINIUM BROMIDE
     Indication: Chronic obstructive pulmonary disease
     Dosage: 1 DOSAGE FORM, DAILY
     Route: 065
  11. NICORETTESKIN 15 mg / 16 hours, transdermal patch [Concomitant]
     Indication: Nicotine dependence
     Dosage: 1 DOSAGE FORM, DAILY
     Route: 065
  12. DAFALGAN 1 g, film-coated tablet [Concomitant]
     Indication: Pain
     Dosage: 4 GRAM, DAILY
     Route: 065
  13. OXAZEPAM [Concomitant]
     Active Substance: OXAZEPAM
     Indication: Anxiety
     Dosage: 125 MILLIGRAM, DAILY
     Route: 048
  14. DOXYCYCLINE [Concomitant]
     Active Substance: DOXYCYCLINE
     Indication: Infection
     Dosage: 100 MILLIGRAM, DAILY
     Route: 048
  15. COLPRONE 5 mg tablet [Concomitant]
     Indication: Menopause
     Dosage: 10 MILLIGRAM, DAILY
     Route: 048
  16. ESOMEPRAZOLE [Concomitant]
     Active Substance: ESOMEPRAZOLE
     Indication: Prophylaxis against gastrointestinal ulcer
     Dosage: 40 MILLIGRAM, DAILY
     Route: 048
  17. LORMETAZEPAM [Concomitant]
     Active Substance: LORMETAZEPAM
     Indication: Insomnia
     Dosage: 2 MILLIGRAM, DAILY
     Route: 048

REACTIONS (1)
  - Serotonin syndrome [Not Recovered/Not Resolved]

NARRATIVE: CASE EVENT DATE: 20210928
